FAERS Safety Report 5660266-7 (Version None)
Quarter: 2008Q1

REPORT INFORMATION
  Report Type: 
  Country: None (occurrence: None)
  Receive Date: 20080306
  Receipt Date: 20080227
  Transmission Date: 20080703
  Serious: Yes (Hospitalization)
  Sender: FDA-Public Use
  Company Number: 062-C5013-07040466

PATIENT
  Age: 62 Year
  Sex: Female
  Weight: 80 kg

DRUGS (12)
  1. CC-5013 (LENALIDOMIDE) (CAPSULES) [Suspect]
     Indication: MULTIPLE MYELOMA
     Dosage: 25 MG, DAILY, ORAL; 15 MG, DAILY, ORAL
     Route: 048
     Dates: start: 20070323, end: 20070404
  2. CC-5013 (LENALIDOMIDE) (CAPSULES) [Suspect]
     Indication: MULTIPLE MYELOMA
     Dosage: 25 MG, DAILY, ORAL; 15 MG, DAILY, ORAL
     Route: 048
     Dates: start: 20070420
  3. DEXAMETHASONE TAB [Suspect]
     Indication: MULTIPLE MYELOMA
     Dosage: 40 MG, DAILY, ORAL
     Route: 048
     Dates: start: 20070323, end: 20070327
  4. DEXAMETHASONE TAB [Suspect]
     Indication: MULTIPLE MYELOMA
     Dosage: 40 MG, DAILY, ORAL
     Route: 048
     Dates: start: 20070331, end: 20070403
  5. LEVOTHYROXIN-NATRIUM (LEVOTHYROXINE SODIUM) [Concomitant]
  6. ENALAPRILMALEAT (ENALAPRIL MALEATE) [Concomitant]
  7. BELOC ZOK (METOPROLOL SUCCINATE) (TABLETS) [Concomitant]
  8. DIHYDROTACHYSTEROL (DIHYDROTACHYSTEROL)(DROPS) [Concomitant]
  9. PAMIDRONAT (PAMIDRONATE DISODIUM) [Concomitant]
  10. PANTOPRAZOLE SODIUM [Concomitant]
  11. MG VERLA (MAGNESIUM HYDROGEN ASPARTATE) [Concomitant]
  12. LEVOTHYROXINE SODIUM [Concomitant]

REACTIONS (5)
  - CONFUSIONAL STATE [None]
  - GENERAL PHYSICAL HEALTH DETERIORATION [None]
  - HYPOCALCAEMIA [None]
  - PYREXIA [None]
  - SOMNOLENCE [None]
